FAERS Safety Report 22286111 (Version 3)
Quarter: 2023Q2

REPORT INFORMATION
  Report Type: Report from Study
  Country: US (occurrence: US)
  Receive Date: 20230505
  Receipt Date: 20230629
  Transmission Date: 20230722
  Serious: Yes (Other)
  Sender: FDA-Public Use
  Company Number: US-ABBVIE-4752166

PATIENT
  Sex: Female

DRUGS (1)
  1. VENCLEXTA [Suspect]
     Active Substance: VENETOCLAX
     Indication: Lymphocytic leukaemia
     Dosage: TAKE 4 TABLETS BY MOUTH ONCE DAILY WITH FOOD AND FULL GLASS OF WATER?FORM STRENGTH: 100 MILLIGRAM
     Route: 048

REACTIONS (4)
  - Transplant [Recovering/Resolving]
  - Infection [Unknown]
  - Malaise [Unknown]
  - Recurrent cancer [Unknown]
